FAERS Safety Report 13726061 (Version 1)
Quarter: 2017Q3

REPORT INFORMATION
  Report Type: Spontaneous
  Country: US (occurrence: US)
  Receive Date: 20170707
  Receipt Date: 20170707
  Transmission Date: 20171127
  Serious: No
  Sender: FDA-Public Use
  Company Number: None

PATIENT
  Age: 62 Year
  Sex: Male
  Weight: 89.1 kg

DRUGS (8)
  1. DEPO TESTOSTERONE [Concomitant]
     Active Substance: TESTOSTERONE
  2. DEXTROAPMHETAMINE 10 MG [Suspect]
     Active Substance: DEXTROAMPHETAMINE SULFATE
     Indication: ATTENTION DEFICIT/HYPERACTIVITY DISORDER
     Dosage: ?          OTHER STRENGTH:MG/MG;QUANTITY:1 TABLET(S);?
     Route: 048
     Dates: start: 20170628, end: 20170706
  3. IBUPROFEN. [Concomitant]
     Active Substance: IBUPROFEN
  4. VITAMIN C [Concomitant]
     Active Substance: ASCORBIC ACID
  5. MAGNESIUM/BORON [Concomitant]
  6. METHYL FOLATE [Concomitant]
  7. ASPIRIN. [Concomitant]
     Active Substance: ASPIRIN
  8. VITAMIN E [Concomitant]
     Active Substance: .ALPHA.-TOCOPHEROL

REACTIONS (11)
  - Drug effect decreased [None]
  - Flushing [None]
  - Product taste abnormal [None]
  - Product solubility abnormal [None]
  - Product physical consistency issue [None]
  - Drug half-life reduced [None]
  - Dizziness [None]
  - Product colour issue [None]
  - Hyperhidrosis [None]
  - Somnolence [None]
  - Hyperpyrexia [None]

NARRATIVE: CASE EVENT DATE: 20170628
